FAERS Safety Report 12454286 (Version 3)
Quarter: 2016Q3

REPORT INFORMATION
  Report Type: Report from Study
  Country: US (occurrence: US)
  Receive Date: 20160610
  Receipt Date: 20160922
  Transmission Date: 20161109
  Serious: Yes (Hospitalization, Other)
  Sender: FDA-Public Use
  Company Number: US-AMGEN-USASL2016072353

PATIENT
  Age: 61 Year
  Sex: Male

DRUGS (1)
  1. ENBREL [Suspect]
     Active Substance: ETANERCEPT
     Indication: RHEUMATOID ARTHRITIS
     Dosage: 50 MG, QWK
     Route: 065
     Dates: start: 201602

REACTIONS (10)
  - Pancreaticojejunostomy [Unknown]
  - Aortic aneurysm [Unknown]
  - Ill-defined disorder [Unknown]
  - Synovial rupture [Unknown]
  - Gouty arthritis [Unknown]
  - Peripheral swelling [Unknown]
  - Malaise [Not Recovered/Not Resolved]
  - Drug effect incomplete [Unknown]
  - Pancreatitis [Unknown]
  - Pancreatic duct stenosis [Unknown]

NARRATIVE: CASE EVENT DATE: 2016
